FAERS Safety Report 15793808 (Version 1)
Quarter: 2019Q1

REPORT INFORMATION
  Report Type: Spontaneous
  Country: US (occurrence: US)
  Receive Date: 20190105
  Receipt Date: 20190105
  Transmission Date: 20190417
  Serious: No
  Sender: FDA-Public Use
  Company Number: None

PATIENT
  Age: 3 Year
  Sex: Male
  Weight: 15.3 kg

DRUGS (1)
  1. TAMIFLU [Suspect]
     Active Substance: OSELTAMIVIR PHOSPHATE
     Indication: INFLUENZA
     Route: 048
     Dates: start: 20181231, end: 20190102

REACTIONS (6)
  - Rash pruritic [None]
  - Rash [None]
  - Aggression [None]
  - Rash generalised [None]
  - Urticaria [None]
  - Abnormal behaviour [None]

NARRATIVE: CASE EVENT DATE: 20190105
